FAERS Safety Report 6230648-3 (Version None)
Quarter: 2009Q2

REPORT INFORMATION
  Report Type: 
  Country: None (occurrence: None)
  Receive Date: 20090611
  Receipt Date: 20090526
  Transmission Date: 20091009
  Serious: Yes (Hospitalization)
  Sender: FDA-Public Use
  Company Number: 8039526

PATIENT
  Age: 70 Year
  Sex: Male
  Weight: 83 kg

DRUGS (19)
  1. CDP870 [Suspect]
     Indication: RHEUMATOID ARTHRITIS
     Dosage: 400 MG 1/2W SC
     Route: 058
     Dates: start: 20050824, end: 20060809
  2. CDP870 [Suspect]
     Indication: RHEUMATOID ARTHRITIS
     Dosage: 400 MG 1/2W SC
     Route: 058
     Dates: start: 20060823, end: 20071128
  3. CDP870 [Suspect]
     Indication: RHEUMATOID ARTHRITIS
     Dosage: 200 MG 1/2W SC
     Route: 058
     Dates: start: 20071217, end: 20080206
  4. CDP870 [Suspect]
     Indication: RHEUMATOID ARTHRITIS
     Dosage: 200 MG 1/2W SC
     Route: 058
     Dates: start: 20080319
  5. METHOTREXATE [Concomitant]
  6. FOLIC ACID [Concomitant]
  7. ETODOLAC [Concomitant]
  8. AMITRIPTYLINE HCL [Concomitant]
  9. OMEPRAZOLE [Concomitant]
  10. CALCIUM CARBONATE W/VITAMIN D [Concomitant]
  11. HYDROCHLOROTHIAZIDE [Concomitant]
  12. ENALAPRIL [Concomitant]
  13. ATORVASTATIN CALCIUM [Concomitant]
  14. ASPIRIN [Concomitant]
  15. VISCOTEARS [Concomitant]
  16. BEDODEKA [Concomitant]
  17. ALENDRONATE [Concomitant]
  18. BISOPROLOL FUMARATE [Concomitant]
  19. PREDNISONE [Concomitant]

REACTIONS (6)
  - CONDITION AGGRAVATED [None]
  - FLANK PAIN [None]
  - GASTROENTERITIS [None]
  - HYPERLIPIDAEMIA [None]
  - HYPERTENSION [None]
  - MYOCARDIAL ISCHAEMIA [None]
